APPROVED DRUG PRODUCT: MEMANTINE HYDROCHLORIDE
Active Ingredient: MEMANTINE HYDROCHLORIDE
Strength: 2MG/ML
Dosage Form/Route: SOLUTION;ORAL
Application: A205446 | Product #001
Applicant: SCIEGEN PHARMACEUTICALS INC
Approved: Dec 7, 2015 | RLD: No | RS: No | Type: DISCN